FAERS Safety Report 9269982 (Version 1)
Quarter: 2013Q2

REPORT INFORMATION
  Report Type: Spontaneous
  Country: US (occurrence: None)
  Receive Date: 20130503
  Receipt Date: 20130503
  Transmission Date: 20140414
  Serious: Yes (Death)
  Sender: FDA-Public Use
  Company Number: None

PATIENT
  Age: 76 Year
  Sex: Male
  Weight: 93.9 kg

DRUGS (1)
  1. PRADAXIA [Suspect]
     Indication: ABDOMINAL PAIN UPPER
     Dates: start: 20110719, end: 20110801

REACTIONS (2)
  - Gastric cancer stage IV [None]
  - Metastases to liver [None]
